FAERS Safety Report 14837935 (Version 1)
Quarter: 2018Q2

REPORT INFORMATION
  Report Type: Other
  Country: IT (occurrence: IT)
  Receive Date: 20180502
  Receipt Date: 20180502
  Transmission Date: 20180711
  Serious: Yes (Other)
  Sender: FDA-Public Use
  Company Number: IT-CELLTRION INC.-2018IT019440

PATIENT

DRUGS (1)
  1. REMSIMA [Suspect]
     Active Substance: INFLIXIMAB
     Indication: COLITIS ULCERATIVE
     Dosage: 5 MG/KG
     Route: 042
     Dates: start: 20180220, end: 20180220

REACTIONS (2)
  - Epistaxis [Recovered/Resolved]
  - Haematospermia [Recovered/Resolved]

NARRATIVE: CASE EVENT DATE: 20180320
